FAERS Safety Report 9859095 (Version 1)
Quarter: 2014Q1

REPORT INFORMATION
  Report Type: Spontaneous
  Country: MX (occurrence: MX)
  Receive Date: 20140131
  Receipt Date: 20140131
  Transmission Date: 20141002
  Serious: Yes (Other)
  Sender: FDA-Public Use
  Company Number: PHHY2014MX009745

PATIENT
  Age: 44 Year
  Sex: Female

DRUGS (3)
  1. TEGRETOL-XR [Suspect]
     Indication: EPILEPSY
     Dosage: UNK UKN, UNK (MINIMAL INITIAL DOSE)
     Route: 048
  2. TEGRETOL-XR [Suspect]
     Dosage: 2 DF (2 TABLETS OF 400 MG), DAILY
     Route: 048
     Dates: end: 201312
  3. CARBAMAZEPINE [Suspect]
     Indication: EPILEPSY
     Dosage: UNK UKN, DAILY
     Route: 048
     Dates: start: 20140119

REACTIONS (6)
  - Bipolar disorder [Not Recovered/Not Resolved]
  - Feeling abnormal [Not Recovered/Not Resolved]
  - Vertigo [Unknown]
  - Dyskinesia [Not Recovered/Not Resolved]
  - Dizziness [Not Recovered/Not Resolved]
  - Decreased appetite [Not Recovered/Not Resolved]
